FAERS Safety Report 18763749 (Version 4)
Quarter: 2022Q1

REPORT INFORMATION
  Report Type: Report from Study
  Country: BR (occurrence: BR)
  Receive Date: 20210120
  Receipt Date: 20220223
  Transmission Date: 20220423
  Serious: Yes (Other)
  Sender: FDA-Public Use
  Company Number: BR-NOVOPROD-781029

PATIENT
  Age: 34 Year
  Sex: Female

DRUGS (2)
  1. VICTOZA [Suspect]
     Active Substance: LIRAGLUTIDE
     Indication: Type 2 diabetes mellitus
     Dosage: 1.2 MG
     Route: 065
     Dates: start: 20201120
  2. VICTOZA [Suspect]
     Active Substance: LIRAGLUTIDE
     Indication: Type 2 diabetes mellitus
     Dosage: 1.2 MG
     Route: 065
     Dates: start: 20201120

REACTIONS (7)
  - Diabetes mellitus inadequate control [Recovered/Resolved]
  - Loss of consciousness [Recovered/Resolved]
  - Device malfunction [Unknown]
  - Device occlusion [Unknown]
  - Visual impairment [Unknown]
  - Fatigue [Unknown]
  - Hypoglycaemia [Recovered/Resolved]

NARRATIVE: CASE EVENT DATE: 20201201
